FAERS Safety Report 20977166 (Version 2)
Quarter: 2022Q2

REPORT INFORMATION
  Report Type: Report from Study
  Country: CA (occurrence: CA)
  Receive Date: 20220617
  Receipt Date: 20220623
  Transmission Date: 20220721
  Serious: Yes (Other)
  Sender: FDA-Public Use
  Company Number: CA-JNJFOC-20220621513

PATIENT
  Age: 15 Year
  Sex: Male
  Weight: 60 kg

DRUGS (2)
  1. REMICADE [Suspect]
     Active Substance: INFLIXIMAB
     Indication: Colitis ulcerative
     Route: 042
     Dates: start: 20220531
  2. REMICADE [Suspect]
     Active Substance: INFLIXIMAB
     Dosage: NEW DOSE REQUESTED 600MG (10MG/KG) IV AT WEEK 2, 6 THEN EVERY 8 WEEKS?ON 15-JUN-2022, RECEIVED 2ND 6
     Route: 042
     Dates: start: 2022

REACTIONS (2)
  - Colitis ulcerative [Not Recovered/Not Resolved]
  - Off label use [Unknown]

NARRATIVE: CASE EVENT DATE: 20220101
